FAERS Safety Report 12159395 (Version 1)
Quarter: 2016Q1

REPORT INFORMATION
  Report Type: Spontaneous
  Country: US (occurrence: None)
  Receive Date: 20160307
  Receipt Date: 20160307
  Transmission Date: 20160526
  Serious: No
  Sender: FDA-Public Use
  Company Number: None

PATIENT
  Age: 8 Year
  Sex: Female

DRUGS (1)
  1. HUMIRA [Suspect]
     Active Substance: ADALIMUMAB
     Indication: PRODUCT USED FOR UNKNOWN INDICATION
     Dosage: 20 MG Q14D SQ
     Route: 058
     Dates: start: 20140811

REACTIONS (2)
  - Gastrointestinal disorder [None]
  - Diarrhoea [None]

NARRATIVE: CASE EVENT DATE: 20160301
